FAERS Safety Report 10216788 (Version 2)
Quarter: 2014Q2

REPORT INFORMATION
  Report Type: Spontaneous
  Country: JP (occurrence: JP)
  Receive Date: 20140604
  Receipt Date: 20140623
  Transmission Date: 20141212
  Serious: Yes (Hospitalization)
  Sender: FDA-Public Use
  Company Number: JP-EISAI INC-E2020-14084-SPO-JP

PATIENT
  Age: 75 Year
  Sex: Female

DRUGS (4)
  1. ARICEPT [Suspect]
     Indication: DEMENTIA ALZHEIMER^S TYPE
     Route: 048
     Dates: start: 20140527, end: 20140527
  2. LEVOTHYROXINE SODIUM HYDRATE [Concomitant]
     Indication: HYPOTHYROIDISM
     Dosage: UNKNOWN
     Route: 048
  3. LIMAPROST ALFADEX [Concomitant]
     Indication: LUMBAR SPINAL STENOSIS
     Dosage: UNKNOWN
     Route: 048
  4. LIVALO [Concomitant]
     Indication: HYPERLIPIDAEMIA
     Dosage: UNKNOWN
     Route: 048

REACTIONS (2)
  - Electrocardiogram QT prolonged [Recovering/Resolving]
  - Vomiting [Recovering/Resolving]
